FAERS Safety Report 5068962-X (Version None)
Quarter: 2006Q3

REPORT INFORMATION
  Report Type: 
  Country: None (occurrence: None)
  Receive Date: 20060801
  Receipt Date: 20060801
  Transmission Date: 20061208
  Serious: Yes (Hospitalization)
  Sender: FDA-Public Use
  Company Number: None

PATIENT
  Sex: Male
  Weight: 79.7 kg

DRUGS (4)
  1. ZOMETA [Suspect]
     Indication: GLIOBLASTOMA MULTIFORME
     Dosage: 4 MG Q12 WEEKS IV
     Route: 042
     Dates: start: 20060712
  2. GLIADEL [Concomitant]
  3. 06-BENZYLGUANINE [Concomitant]
  4. INNOHEP [Concomitant]

REACTIONS (8)
  - COMPUTERISED TOMOGRAM ABNORMAL [None]
  - CONVULSION [None]
  - EXCORIATION [None]
  - FALL [None]
  - HEAD INJURY [None]
  - HEADACHE [None]
  - NEUROPATHY [None]
  - PARTIAL SEIZURES [None]
